FAERS Safety Report 5529117-5 (Version None)
Quarter: 2007Q4

REPORT INFORMATION
  Report Type: 
  Country: None (occurrence: None)
  Receive Date: 20071129
  Receipt Date: 20070306
  Transmission Date: 20080405
  Serious: No
  Sender: FDA-Public Use
  Company Number: A0634777A

PATIENT
  Age: 57 Year
  Sex: Female

DRUGS (5)
  1. BUPROPION HCL [Suspect]
     Indication: DEPRESSION
     Dosage: 100MG TWICE PER DAY
     Route: 048
     Dates: start: 20061205
  2. LOVASTATIN [Concomitant]
     Dosage: 20MG PER DAY
     Route: 048
     Dates: start: 20061230
  3. FOSAMAX [Concomitant]
     Indication: OSTEOPOROSIS PROPHYLAXIS
     Dosage: 70MG WEEKLY
     Route: 048
     Dates: start: 20061230
  4. TRAZODONE HCL [Concomitant]
     Indication: SLEEP DISORDER
     Dosage: 100MG AT NIGHT
     Route: 048
  5. AMBIEN [Concomitant]
     Indication: SLEEP DISORDER
     Dosage: 10MG AS REQUIRED
     Route: 048
     Dates: start: 20061205

REACTIONS (2)
  - MEDICATION RESIDUE [None]
  - PHARMACEUTICAL PRODUCT COMPLAINT [None]
